FAERS Safety Report 8808981 (Version 1)
Quarter: 2012Q4

REPORT INFORMATION
  Report Type: 
  Country: DE (occurrence: IT)
  Receive Date: 20120926
  Receipt Date: 20120926
  Transmission Date: 20130627
  Serious: Yes (Other)
  Sender: FDA-Public Use
  Company Number: IT-BRISTOL-MYERS SQUIBB COMPANY-16986424

PATIENT

DRUGS (1)
  1. ERBITUX SOLN FOR INF [Suspect]
     Indication: COLON CANCER

REACTIONS (2)
  - Anuria [Unknown]
  - Asthenia [Unknown]
